FAERS Safety Report 7056483-4 (Version None)
Quarter: 2010Q4

REPORT INFORMATION
  Report Type: 
  Country: None (occurrence: None)
  Receive Date: 20101021
  Receipt Date: 20101011
  Transmission Date: 20110411
  Serious: Yes (Other)
  Sender: FDA-Public Use
  Company Number: GB-PFIZER INC-2010129197

PATIENT
  Age: 35 Year
  Sex: Male
  Weight: 72 kg

DRUGS (5)
  1. PREGABALIN [Suspect]
     Indication: BACK PAIN
     Dosage: 200 MG, 3X/DAY
     Route: 048
     Dates: start: 20090301
  2. DIAZEPAM [Concomitant]
     Indication: DRUG DEPENDENCE
     Dosage: 30 MG, UNK
     Route: 048
     Dates: start: 20090801
  3. LACTULOSE [Concomitant]
     Indication: CONSTIPATION
     Dosage: 15 ML, 2X/DAY
     Route: 048
  4. METHADONE [Concomitant]
     Indication: DRUG DEPENDENCE
     Dosage: 65 ML, UNK
     Route: 048
  5. ZOPICLONE [Concomitant]
     Indication: INSOMNIA
     Dosage: 7.5 MG, UNK
     Route: 048
     Dates: start: 20100301

REACTIONS (3)
  - DRUG DEPENDENCE [None]
  - INTENTIONAL DRUG MISUSE [None]
  - WITHDRAWAL SYNDROME [None]
